FAERS Safety Report 4607704-6 (Version None)
Quarter: 2005Q1

REPORT INFORMATION
  Report Type: 
  Country: None (occurrence: None)
  Receive Date: 20050309
  Receipt Date: 20050218
  Transmission Date: 20050727
  Serious: Yes (Other)
  Sender: FDA-Public Use
  Company Number: B0372287A

PATIENT

DRUGS (5)
  1. VINORELBINE TARTRATE [Suspect]
     Indication: BREAST CANCER METASTATIC
     Dosage: 25 MG/M2 / CYCLIC/ INTRAVENOUS INFUSION
     Route: 042
  2. DOCETAXEL STERILE POWDER (DOCETAXEL) [Suspect]
     Indication: BREAST CANCER METASTATIC
     Dosage: 60 MG/M2 CYCLIC / INTRAVENOUS INFUSION
     Route: 042
  3. DEXAMETHASONE [Concomitant]
  4. ANTI-EMETIC [Concomitant]
  5. GRANULOCYTE COL. STIM. FACT [Concomitant]

REACTIONS (1)
  - CARDIOTOXICITY [None]
